FAERS Safety Report 8555804-0 (Version None)
Quarter: 2012Q3

REPORT INFORMATION
  Report Type: 
  Country: None (occurrence: None)
  Receive Date: 20120801
  Receipt Date: 20120723
  Transmission Date: 20120928
  Serious: No
  Sender: FDA-Public Use
  Company Number: US-BIOGENIDEC-2012BI012677

PATIENT
  Sex: Female

DRUGS (2)
  1. TYSABRI [Suspect]
     Indication: MULTIPLE SCLEROSIS
     Route: 042
     Dates: start: 20120221
  2. AMPYRA [Concomitant]
     Indication: MULTIPLE SCLEROSIS
     Dates: start: 20111001

REACTIONS (13)
  - UPPER RESPIRATORY TRACT INFECTION [None]
  - SPEECH DISORDER [None]
  - OESOPHAGEAL DISORDER [None]
  - LACERATION [None]
  - WOUND HAEMORRHAGE [None]
  - HYPERTENSION [None]
  - COUGH [None]
  - MEMORY IMPAIRMENT [None]
  - IMPAIRED HEALING [None]
  - PHARYNGEAL DISORDER [None]
  - GASTROOESOPHAGEAL REFLUX DISEASE [None]
  - STRESS [None]
  - FATIGUE [None]
